FAERS Safety Report 5095622-1 (Version None)
Quarter: 2006Q3

REPORT INFORMATION
  Report Type: 
  Country: None (occurrence: None)
  Receive Date: 20060901
  Receipt Date: 20060620
  Transmission Date: 20061208
  Serious: Yes (Hospitalization)
  Sender: FDA-Public Use
  Company Number: JP-MERCK-0606USA04091

PATIENT
  Age: 71 Year
  Sex: Male
  Weight: 49 kg

DRUGS (8)
  1. DECADRON [Suspect]
     Indication: MULTIPLE MYELOMA
     Route: 048
     Dates: start: 20051223, end: 20051226
  2. ADRIAMYCIN PFS [Suspect]
     Indication: MULTIPLE MYELOMA
     Route: 042
     Dates: start: 20051223, end: 20051226
  3. ONCOVIN [Suspect]
     Indication: MULTIPLE MYELOMA
     Route: 042
     Dates: start: 20051223, end: 20051226
  4. KYTRIL [Concomitant]
     Indication: PROPHYLAXIS OF NAUSEA AND VOMITING
     Route: 041
     Dates: start: 20051223, end: 20051226
  5. MEYLON [Concomitant]
     Route: 042
     Dates: start: 20051222, end: 20051226
  6. BACTRIM [Concomitant]
     Indication: PROPHYLAXIS
     Route: 048
     Dates: start: 20051004, end: 20060115
  7. ALLOPURINOL [Concomitant]
     Indication: BLOOD URIC ACID INCREASED
     Route: 048
     Dates: start: 20051222, end: 20051228
  8. OPSO [Concomitant]
     Indication: CANCER PAIN
     Route: 048
     Dates: start: 20050830

REACTIONS (3)
  - BONE MARROW FAILURE [None]
  - PLATELET COUNT DECREASED [None]
  - WHITE BLOOD CELL COUNT DECREASED [None]
